FAERS Safety Report 8584065-1 (Version None)
Quarter: 2012Q3

REPORT INFORMATION
  Report Type: 
  Country: None (occurrence: None)
  Receive Date: 20120810
  Receipt Date: 20120724
  Transmission Date: 20120928
  Serious: No
  Sender: FDA-Public Use
  Company Number: US-009507513-1207USA009981

PATIENT

DRUGS (4)
  1. VICTRELIS [Suspect]
     Indication: HEPATITIS C
     Dosage: 800 MG, THREE TIMES A DAY
     Route: 048
     Dates: start: 20120607
  2. PEGASYS [Suspect]
     Dosage: UNK
  3. RIBASPHERE [Suspect]
     Dosage: UNK
  4. PROMACTA [Concomitant]
     Dosage: UNK

REACTIONS (3)
  - MEMORY IMPAIRMENT [None]
  - ASTHENIA [None]
  - DYSGEUSIA [None]
